FAERS Safety Report 6982674-4 (Version None)
Quarter: 2010Q3

REPORT INFORMATION
  Report Type: 
  Country: None (occurrence: None)
  Receive Date: 20100914
  Receipt Date: 20100907
  Transmission Date: 20110219
  Serious: Yes (Hospitalization)
  Sender: FDA-Public Use
  Company Number: US-AMGEN-KDL436757

PATIENT
  Sex: Male

DRUGS (1)
  1. ENBREL [Suspect]
     Indication: ANKYLOSING SPONDYLITIS
     Dates: start: 20100615

REACTIONS (3)
  - ARTHRALGIA [None]
  - JOINT RANGE OF MOTION DECREASED [None]
  - MUSCULOSKELETAL STIFFNESS [None]
